FAERS Safety Report 8802937 (Version 1)
Quarter: 2012Q4

REPORT INFORMATION
  Report Type: 
  Country: DE (occurrence: DE)
  Receive Date: 20120924
  Receipt Date: 20120924
  Transmission Date: 20130627
  Serious: Yes (Other)
  Sender: FDA-Public Use
  Company Number: DE-PFIZER INC-2012228981

PATIENT
  Age: 79 Year
  Sex: Male

DRUGS (1)
  1. SORTIS [Suspect]
     Dosage: 10 mg, UNK

REACTIONS (1)
  - Deafness unilateral [Unknown]
